FAERS Safety Report 13850336 (Version 3)
Quarter: 2017Q3

REPORT INFORMATION
  Report Type: Spontaneous
  Country: GB (occurrence: GB)
  Receive Date: 20170809
  Receipt Date: 20170926
  Transmission Date: 20171127
  Serious: Yes (Hospitalization)
  Sender: FDA-Public Use
  Company Number: GB-009507513-1708GBR003807

PATIENT
  Age: 30 Year
  Sex: Female

DRUGS (2)
  1. CORTICOSTEROIDS (UNSPECIFIED) [Suspect]
     Active Substance: UNSPECIFIED INGREDIENT
  2. NEXPLANON [Suspect]
     Active Substance: ETONOGESTREL
     Dosage: UNK
     Route: 059
     Dates: end: 2017

REACTIONS (7)
  - Swelling face [Unknown]
  - Blister [Unknown]
  - Pain [Unknown]
  - Rash [Unknown]
  - Skin fissures [Unknown]
  - Rash generalised [Unknown]
  - Oedema peripheral [Unknown]
